FAERS Safety Report 9799591 (Version 2)
Quarter: 2014Q1

REPORT INFORMATION
  Report Type: Spontaneous
  Country: US (occurrence: US)
  Receive Date: 20140106
  Receipt Date: 20140106
  Transmission Date: 20141002
  Serious: No
  Sender: FDA-Public Use
  Company Number: US-GILEAD-2010-0031394

PATIENT
  Age: 57 Year
  Sex: Male
  Weight: 163.29 kg

DRUGS (19)
  1. LETAIRIS [Suspect]
     Indication: PULMONARY ARTERIAL HYPERTENSION
     Route: 048
     Dates: start: 20090921
  2. ADCIRCA [Concomitant]
  3. LASIX [Concomitant]
  4. AMLODIPINE BESYLATE [Concomitant]
  5. PRAVASTATIN [Concomitant]
  6. LISINOPRIL [Concomitant]
  7. OXYGEN [Concomitant]
  8. COMBIVENT INHALER [Concomitant]
  9. NOVOLIN 70/30 [Concomitant]
  10. LANTUS [Concomitant]
  11. NOVOLOG [Concomitant]
  12. OXYCODONE [Concomitant]
  13. OXYCONTIN [Concomitant]
  14. CARSOPRODOL [Concomitant]
  15. ALPRAZOLAM [Concomitant]
  16. EFFEXOR XR [Concomitant]
  17. SPIRONOLACTONE [Concomitant]
  18. BUMEX [Concomitant]
  19. POTASSIUM CHLORIDE [Concomitant]

REACTIONS (2)
  - Dry mouth [Unknown]
  - Diarrhoea [Unknown]
